FAERS Safety Report 4617746-2 (Version None)
Quarter: 2005Q1

REPORT INFORMATION
  Report Type: 
  Country: None (occurrence: None)
  Receive Date: 20050324
  Receipt Date: 20050314
  Transmission Date: 20050727
  Serious: Yes (Other)
  Sender: FDA-Public Use
  Company Number: JP-ROCHE-399272

PATIENT
  Age: 71 Year
  Sex: Male

DRUGS (3)
  1. TAMIFLU [Suspect]
     Route: 048
     Dates: start: 20050308, end: 20050312
  2. AMARYL [Concomitant]
     Route: 048
  3. ACTOS [Concomitant]
     Route: 048

REACTIONS (3)
  - NAUSEA [None]
  - NEPHROPATHY [None]
  - PROTEIN URINE PRESENT [None]
